FAERS Safety Report 15736763 (Version 1)
Quarter: 2018Q4

REPORT INFORMATION
  Report Type: Spontaneous
  Country: US (occurrence: US)
  Receive Date: 20181218
  Receipt Date: 20181218
  Transmission Date: 20190205
  Serious: No
  Sender: FDA-Public Use
  Company Number: US-PERRIGO-17US029447

PATIENT
  Age: 68 Year
  Sex: Female
  Weight: 72.56 kg

DRUGS (4)
  1. BACITRACIN. [Suspect]
     Active Substance: BACITRACIN
     Indication: ROUTINE HEALTH MAINTENANCE
     Dosage: UNK, TID
     Route: 047
     Dates: start: 20171026, end: 20171105
  2. FISH OIL [Concomitant]
     Active Substance: FISH OIL
     Indication: SUPPLEMENTATION THERAPY
     Dosage: UNK
     Route: 048
  3. MULTIVITAMINS, PLAIN [Concomitant]
     Active Substance: VITAMINS
     Indication: SUPPLEMENTATION THERAPY
     Dosage: UNK
     Route: 048
  4. CALCIUM [Concomitant]
     Active Substance: CALCIUM
     Indication: SUPPLEMENTATION THERAPY
     Dosage: UNK
     Route: 048

REACTIONS (9)
  - Lacrimation increased [Not Recovered/Not Resolved]
  - Visual impairment [Recovering/Resolving]
  - Eye disorder [Recovering/Resolving]
  - Eye oedema [Recovering/Resolving]
  - Off label use [Recovered/Resolved]
  - Photophobia [Recovering/Resolving]
  - Hypersensitivity [Not Recovered/Not Resolved]
  - Eye colour change [Not Recovered/Not Resolved]
  - Eye pain [Recovering/Resolving]

NARRATIVE: CASE EVENT DATE: 20171026
